FAERS Safety Report 14893906 (Version 1)
Quarter: 2018Q2

REPORT INFORMATION
  Report Type: Report from Study
  Country: CA (occurrence: CA)
  Receive Date: 20180514
  Receipt Date: 20180514
  Transmission Date: 20180711
  Serious: Yes (Other)
  Sender: FDA-Public Use
  Company Number: CA-SA-2018SA095050

PATIENT
  Age: 37 Year
  Sex: Male

DRUGS (16)
  1. ACYCLOVIR. [Concomitant]
     Active Substance: ACYCLOVIR
     Route: 048
     Dates: start: 20180326
  2. GRAVOL [Concomitant]
     Active Substance: DIMENHYDRINATE
     Route: 042
     Dates: start: 20180326
  3. REACTINE [CETIRIZINE HYDROCHLORIDE] [Concomitant]
     Active Substance: CETIRIZINE HYDROCHLORIDE
     Route: 048
     Dates: start: 20180326, end: 20180328
  4. TYLENOL [Concomitant]
     Active Substance: ACETAMINOPHEN
     Dosage: DOSE-325-975MG
     Route: 048
     Dates: start: 20180326
  5. SEROQUEL [Concomitant]
     Active Substance: QUETIAPINE FUMARATE
     Route: 048
  6. RANITIDINE. [Concomitant]
     Active Substance: RANITIDINE
     Route: 048
     Dates: start: 20180326, end: 20180328
  7. BENADRYL [Concomitant]
     Active Substance: DIPHENHYDRAMINE HYDROCHLORIDE
     Dosage: DOSE-25-50 MG
     Route: 048
     Dates: start: 20180326, end: 20180327
  8. GRAVOL [Concomitant]
     Active Substance: DIMENHYDRINATE
     Route: 042
     Dates: start: 20180326
  9. VITAMIN B12 [Concomitant]
     Active Substance: CYANOCOBALAMIN
     Route: 048
  10. LAMOTRIGINE. [Concomitant]
     Active Substance: LAMOTRIGINE
     Route: 048
  11. PANTECTA [Concomitant]
     Active Substance: PANTOPRAZOLE SODIUM
     Route: 048
  12. LEMTRADA [Suspect]
     Active Substance: ALEMTUZUMAB
     Indication: RELAPSING-REMITTING MULTIPLE SCLEROSIS
     Route: 041
     Dates: start: 20180326, end: 20180328
  13. METHYLPREDNISOLONE. [Concomitant]
     Active Substance: METHYLPREDNISOLONE
     Route: 042
     Dates: start: 20180326, end: 20180328
  14. VITAMIN D [Concomitant]
     Active Substance: CHOLECALCIFEROL
     Route: 048
  15. SYNTHROID [Concomitant]
     Active Substance: LEVOTHYROXINE SODIUM
     Route: 048
  16. AMANTADINE. [Concomitant]
     Active Substance: AMANTADINE HYDROCHLORIDE
     Route: 048

REACTIONS (15)
  - Cellulitis [Recovered/Resolved]
  - Headache [Unknown]
  - Snoring [Recovered/Resolved]
  - Asthenia [Recovered/Resolved]
  - Hypertension [Recovered/Resolved]
  - Insomnia [Recovered/Resolved]
  - Dyspepsia [Recovered/Resolved]
  - Feeling hot [Recovered/Resolved]
  - Pyrexia [Recovered/Resolved]
  - Chills [Recovered/Resolved]
  - Nausea [Recovered/Resolved]
  - Tachycardia [Recovered/Resolved]
  - Infusion site extravasation [Recovered/Resolved]
  - Tachypnoea [Recovered/Resolved]
  - Infusion site swelling [Recovered/Resolved with Sequelae]

NARRATIVE: CASE EVENT DATE: 2018
